FAERS Safety Report 13739226 (Version 3)
Quarter: 2017Q3

REPORT INFORMATION
  Report Type: Report from Study
  Country: US (occurrence: US)
  Receive Date: 20170710
  Receipt Date: 20170824
  Transmission Date: 20171127
  Serious: Yes (Death, Hospitalization)
  Sender: FDA-Public Use
  Company Number: US-ACTELION-A-NJ2017-155587

PATIENT
  Age: 86 Year
  Sex: Female
  Weight: 67.57 kg

DRUGS (5)
  1. UPTRAVI [Suspect]
     Active Substance: SELEXIPAG
     Dosage: 200 MCG, QD
     Route: 048
  2. WARFARIN [Concomitant]
     Active Substance: WARFARIN
  3. REVATIO [Concomitant]
     Active Substance: SILDENAFIL CITRATE
  4. UPTRAVI [Suspect]
     Active Substance: SELEXIPAG
     Indication: PULMONARY ARTERIAL HYPERTENSION
     Dosage: 400 MCG, BID
     Route: 048
  5. UPTRAVI [Suspect]
     Active Substance: SELEXIPAG
     Dosage: 200 MCG, BID
     Route: 048

REACTIONS (17)
  - Flushing [Unknown]
  - Diarrhoea [Unknown]
  - Nausea [Unknown]
  - Dyspepsia [Unknown]
  - Death [Fatal]
  - Poor quality sleep [Unknown]
  - Nasal congestion [Unknown]
  - Pain in extremity [Unknown]
  - Haemorrhoids [Unknown]
  - Fungal infection [Unknown]
  - Anxiety [Unknown]
  - Decreased appetite [Unknown]
  - Fluid retention [Unknown]
  - Arthralgia [Unknown]
  - Renal disorder [Unknown]
  - Blood pressure abnormal [Unknown]
  - Myalgia [Unknown]

NARRATIVE: CASE EVENT DATE: 201708
